FAERS Safety Report 13175500 (Version 1)
Quarter: 2017Q1

REPORT INFORMATION
  Report Type: Spontaneous
  Country: US (occurrence: US)
  Receive Date: 20170201
  Receipt Date: 20170201
  Transmission Date: 20170428
  Serious: No
  Sender: FDA-Public Use
  Company Number: US-GALDERMA-US16000710

PATIENT
  Age: 15 Year
  Sex: Male

DRUGS (4)
  1. CETAPHIL [Concomitant]
     Active Substance: AVOBENZONE\OCTOCRYLENE\TRICLOSAN
     Indication: DRY SKIN PROPHYLAXIS
     Route: 061
     Dates: start: 2014
  2. DOXYCYCLINE. [Suspect]
     Active Substance: DOXYCYCLINE
     Indication: ACNE
  3. EPIDUO [Suspect]
     Active Substance: ADAPALENE\BENZOYL PEROXIDE
     Indication: ACNE
     Dosage: 0.1% / 2.5%
     Route: 061
     Dates: start: 2010
  4. UNSPECIFIED BAR SOAP [Concomitant]
     Indication: THERAPEUTIC SKIN CARE TOPICAL
     Route: 061

REACTIONS (7)
  - Drug administered to patient of inappropriate age [Recovered/Resolved]
  - Dry skin [Not Recovered/Not Resolved]
  - Acne [Not Recovered/Not Resolved]
  - Drug ineffective [Not Recovered/Not Resolved]
  - Product use issue [Recovered/Resolved]
  - Scar [Not Recovered/Not Resolved]
  - Drug ineffective for unapproved indication [Recovered/Resolved]
